FAERS Safety Report 7583401-2 (Version None)
Quarter: 2011Q2

REPORT INFORMATION
  Report Type: 
  Country: None (occurrence: None)
  Receive Date: 20110623
  Receipt Date: 20110608
  Transmission Date: 20111010
  Serious: Yes (Death, Hospitalization)
  Sender: FDA-Public Use
  Company Number: 2011MA006392

PATIENT
  Age: 43 Year
  Sex: Male

DRUGS (4)
  1. RIFAMPIN [Suspect]
     Indication: TUBERCULOSIS
  2. PYRAZINAMIDE [Concomitant]
  3. ETHAMBUTOL HYDROCHLORIDE [Concomitant]
  4. ISONIAZID [Concomitant]

REACTIONS (6)
  - DYSPNOEA [None]
  - THROMBOCYTOPENIA [None]
  - PLEURAL EFFUSION [None]
  - HAEMOPTYSIS [None]
  - HYPERHIDROSIS [None]
  - COUGH [None]
